FAERS Safety Report 8846982 (Version 1)
Quarter: 2012Q4

REPORT INFORMATION
  Report Type: 
  Country: US (occurrence: US)
  Receive Date: 20121018
  Receipt Date: 20121018
  Transmission Date: 20130627
  Serious: No
  Sender: FDA-Public Use
  Company Number: US-PFIZER INC-2012259097

PATIENT
  Age: 65 Year
  Sex: Female
  Weight: 100 kg

DRUGS (2)
  1. LYRICA [Suspect]
     Indication: NEURALGIA
     Dosage: 75 mg, 2x/day
     Dates: end: 2009
  2. LYRICA [Suspect]
     Dosage: 75 mg, 2x/day
     Dates: start: 201208

REACTIONS (3)
  - Drug ineffective [Unknown]
  - Pain [Unknown]
  - Weight increased [Unknown]
